FAERS Safety Report 9994654 (Version 1)
Quarter: 2014Q1

REPORT INFORMATION
  Report Type: Spontaneous
  Country: GB (occurrence: None)
  Receive Date: 20140306
  Receipt Date: 20140306
  Transmission Date: 20141002
  Serious: Yes (Death, Other)
  Sender: FDA-Public Use
  Company Number: AUR-APL-2014-02170

PATIENT
  Age: 78 Year
  Sex: Female

DRUGS (7)
  1. MODAFINIL (MODAFINIL) [Suspect]
     Indication: RESPIRATORY FAILURE
     Dosage: 200 MG, 1 IN 1 D, ORAL
     Route: 048
     Dates: start: 201202, end: 201212
  2. FRUSEMIDE (FUROSEMIDE) [Concomitant]
  3. LOSARTAN [Concomitant]
  4. MIRTAZAPINE [Concomitant]
  5. OLANZAPINE [Concomitant]
  6. SERETIDE [Concomitant]
  7. TIOPROPIUM BROMIDE [Concomitant]

REACTIONS (2)
  - Pneumonia [None]
  - Cardiac failure congestive [None]
